FAERS Safety Report 22537690 (Version 4)
Quarter: 2023Q4

REPORT INFORMATION
  Report Type: Spontaneous
  Country: US (occurrence: US)
  Receive Date: 20230608
  Receipt Date: 20231009
  Transmission Date: 20240110
  Serious: No
  Sender: FDA-Public Use
  Company Number: US-PFIZER INC-202300214170

PATIENT
  Age: 28 Year
  Sex: Female

DRUGS (1)
  1. DEPO-PROVERA [Suspect]
     Active Substance: MEDROXYPROGESTERONE ACETATE
     Indication: Contraception
     Dosage: UNK, CYCLIC (ONCE EVERY 3 MONTHS)
     Dates: start: 20220711

REACTIONS (2)
  - Injection site atrophy [Unknown]
  - Product administered at inappropriate site [Unknown]

NARRATIVE: CASE EVENT DATE: 20220711
